FAERS Safety Report 9173983 (Version 1)
Quarter: 2013Q1

REPORT INFORMATION
  Report Type: Spontaneous
  Country: GB (occurrence: None)
  Receive Date: 20130315
  Receipt Date: 20130315
  Transmission Date: 20140127
  Serious: Yes (Other)
  Sender: FDA-Public Use
  Company Number: GER/UKI/13/0028534

PATIENT
  Age: 54 Year
  Sex: Male
  Weight: 110 kg

DRUGS (6)
  1. OMEPRAZOLE (OMEPRAZOLE) [Suspect]
     Indication: DYSPEPSIA
     Dosage: 20 MG, 1 IN D, ORAL
     Route: 048
     Dates: start: 201212, end: 201301
  2. ASPIRIN(ACETYLSALICYLIC ACID) [Concomitant]
  3. BISOPROLOL(BISOPROLOL) [Concomitant]
  4. DILTIAZEM HYDROCHLORIDE(DILTIAZEM HYDROCHLORIDE) [Concomitant]
  5. LISINOPRIL(LISINOPRIL) [Concomitant]
  6. SIMVASTATIN(SIMVASTATIN) [Concomitant]

REACTIONS (4)
  - Discomfort [None]
  - Anxiety [None]
  - Hypoaesthesia [None]
  - Paraesthesia oral [None]
